FAERS Safety Report 26105255 (Version 1)
Quarter: 2025Q4

REPORT INFORMATION
  Report Type: Spontaneous
  Country: US (occurrence: US)
  Receive Date: 20251201
  Receipt Date: 20251201
  Transmission Date: 20260117
  Serious: Yes (Other)
  Sender: SANDOZ
  Company Number: US-SANDOZ-SDZ2025US088946

PATIENT
  Age: 80 Year
  Sex: Female

DRUGS (1)
  1. JUBBONTI [Suspect]
     Active Substance: DENOSUMAB-BBDZ
     Indication: Product used for unknown indication
     Dosage: UNK (60 MG PREFILLED SYRINGE)
     Route: 058

REACTIONS (2)
  - Thyroid operation [Unknown]
  - Gastric operation [Unknown]
